FAERS Safety Report 4627073-5 (Version None)
Quarter: 2005Q1

REPORT INFORMATION
  Report Type: 
  Country: None (occurrence: None)
  Receive Date: 20050331
  Receipt Date: 20050314
  Transmission Date: 20050727
  Serious: No
  Sender: FDA-Public Use
  Company Number: 2003GB02954

PATIENT
  Age: 9 Year
  Sex: Male

DRUGS (2)
  1. EMLA [Suspect]
     Dosage: 5 DAYS PER WEEK
     Dates: start: 20020801, end: 20031001
  2. DESFERAL [Concomitant]

REACTIONS (2)
  - DERMATITIS CONTACT [None]
  - ECZEMA [None]
